FAERS Safety Report 10874848 (Version 3)
Quarter: 2015Q1

REPORT INFORMATION
  Report Type: Spontaneous
  Country: JP (occurrence: JP)
  Receive Date: 20150227
  Receipt Date: 20150320
  Transmission Date: 20150721
  Serious: Yes (Other)
  Sender: FDA-Public Use
  Company Number: JP-009507513-1502JPN009785

PATIENT
  Age: 87 Year
  Sex: Male
  Weight: 65 kg

DRUGS (10)
  1. BELSOMRA [Suspect]
     Active Substance: SUVOREXANT
     Indication: INSOMNIA
     Dosage: 15 MG, BID (THE PATIENT TOOK ONE TABLET AT 00:00 AND ONE TABLET AT 22:00)
     Route: 048
     Dates: start: 20150215, end: 20150215
  2. FINIBAX [Concomitant]
     Active Substance: DORIPENEM MONOHYDRATE
     Dosage: DAILY DOSAGE UNKNOWN
     Route: 051
     Dates: start: 20150213, end: 20150219
  3. SOL MELCORT [Concomitant]
     Active Substance: METHYLPREDNISOLONE
     Dosage: DAILY DOSAGE UNKNOWN
     Route: 051
     Dates: start: 20150213, end: 20150215
  4. BAYASPIRIN [Concomitant]
     Active Substance: ASPIRIN
     Dosage: DAILY DOSAGE UNKNOWN
     Route: 048
     Dates: end: 20150213
  5. HANP [Concomitant]
     Active Substance: CARPERITIDE
     Dosage: DAILY DOSAGE UNKNOWN
     Route: 051
     Dates: start: 20150213, end: 20150224
  6. WARFARIN [Concomitant]
     Active Substance: WARFARIN
     Dosage: DAILY DOSAGE UNKNOWN
     Route: 048
     Dates: end: 20150213
  7. FAMOTIDINE. [Concomitant]
     Active Substance: FAMOTIDINE
     Dosage: DAILY DOSAGE UNKNOWN
     Route: 051
     Dates: start: 20150213, end: 20150224
  8. UNISIA [Concomitant]
     Active Substance: AMLODIPINE BESYLATE\CANDESARTAN CILEXETIL
     Dosage: DAILY DOSAGE UNKNOWN
     Route: 048
     Dates: end: 20150213
  9. CLARITH [Concomitant]
     Active Substance: CLARITHROMYCIN
     Dosage: DAILY DOSAGE UNKNOWN
     Route: 048
     Dates: start: 20150213, end: 20150217
  10. AROTINOLOL [Concomitant]
     Active Substance: AROTINOLOL
     Dosage: DAILY DOSAGE UNKNOWN
     Route: 048
     Dates: end: 20150213

REACTIONS (2)
  - Interstitial lung disease [Unknown]
  - Delirium [Recovered/Resolved]

NARRATIVE: CASE EVENT DATE: 20150215
